FAERS Safety Report 8952515 (Version 3)
Quarter: 2013Q2

REPORT INFORMATION
  Report Type: Spontaneous
  Country: US (occurrence: US)
  Receive Date: 20121205
  Receipt Date: 20130423
  Transmission Date: 20140414
  Serious: Yes (Hospitalization)
  Sender: FDA-Public Use
  Company Number: US-BAYER-2012-126919

PATIENT
  Age: 20 Year
  Sex: Female
  Weight: 65.76 kg

DRUGS (3)
  1. YASMIN [Suspect]
     Dosage: UNK
     Dates: start: 20101101, end: 201104
  2. ZARAH [Suspect]
  3. VALTREX [Concomitant]
     Indication: HERPES SIMPLEX
     Dosage: 500 MG, BID
     Dates: start: 201008, end: 201208

REACTIONS (8)
  - Deep vein thrombosis [None]
  - Pain [None]
  - Injury [None]
  - General physical health deterioration [None]
  - Anxiety [None]
  - Anhedonia [None]
  - Emotional distress [None]
  - Pain [None]
